FAERS Safety Report 8966193 (Version 1)
Quarter: 2012Q4

REPORT INFORMATION
  Report Type: 
  Country: US (occurrence: US)
  Receive Date: 20121217
  Receipt Date: 20121217
  Transmission Date: 20130627
  Serious: No
  Sender: FDA-Public Use
  Company Number: US-PFIZER INC-2012314624

PATIENT
  Sex: Male

DRUGS (2)
  1. CHANTIX [Suspect]
     Indication: SMOKING CESSATION THERAPY
     Dosage: 0.5 mg, 1x/day
     Route: 048
     Dates: start: 201211, end: 201211
  2. CHANTIX [Suspect]
     Dosage: 0.5 mg, 2x/day
     Route: 048
     Dates: start: 201211, end: 201212

REACTIONS (1)
  - Abnormal dreams [Recovered/Resolved]
